FAERS Safety Report 22037889 (Version 2)
Quarter: 2023Q1

REPORT INFORMATION
  Report Type: Spontaneous
  Country: US (occurrence: US)
  Receive Date: 20230227
  Receipt Date: 20230303
  Transmission Date: 20230417
  Serious: No
  Sender: FDA-Public Use
  Company Number: US-AMGEN-USASP2023034149

PATIENT
  Age: 65 Year
  Sex: Male

DRUGS (8)
  1. REPATHA [Suspect]
     Active Substance: EVOLOCUMAB
     Indication: Coronary artery disease
     Dosage: 140 MILLIGRAM, Q2WK
     Route: 058
  2. REPATHA [Suspect]
     Active Substance: EVOLOCUMAB
     Indication: Product used for unknown indication
     Dosage: UNK, Q2WK
     Route: 065
  3. REPATHA [Suspect]
     Active Substance: EVOLOCUMAB
     Dosage: UNK, Q2WK
     Route: 065
  4. CONTACT [Concomitant]
     Indication: Product used for unknown indication
  5. HEART [Concomitant]
     Indication: Product used for unknown indication
  6. SHIELD-TEMP [Concomitant]
     Active Substance: ZINC OXIDE
     Indication: Product used for unknown indication
  7. STAGE [Concomitant]
     Indication: Product used for unknown indication
  8. TRIGLYCERIDES [Concomitant]
     Indication: Product used for unknown indication

REACTIONS (4)
  - Accidental exposure to product [Unknown]
  - Device use error [Unknown]
  - Incorrect dose administered by device [Unknown]
  - Injection site haemorrhage [Unknown]

NARRATIVE: CASE EVENT DATE: 20230218
